FAERS Safety Report 17159219 (Version 1)
Quarter: 2019Q4

REPORT INFORMATION
  Report Type: Spontaneous
  Country: US (occurrence: US)
  Receive Date: 20191215
  Receipt Date: 20191215
  Transmission Date: 20200122
  Serious: Yes (Disabling, Other)
  Sender: FDA-Public Use
  Company Number: None

PATIENT
  Age: 15 Year
  Sex: Male
  Weight: 65.25 kg

DRUGS (5)
  1. XYREM [Suspect]
     Active Substance: SODIUM OXYBATE
     Indication: CATAPLEXY
     Dosage: ?          QUANTITY:2 500MG/ML;OTHER FREQUENCY:2 TIMES PER NIGHT;?
     Route: 048
  2. EPIPEN [Concomitant]
     Active Substance: EPINEPHRINE
  3. XYREM [Concomitant]
     Active Substance: SODIUM OXYBATE
  4. FLONASE [Concomitant]
     Active Substance: FLUTICASONE PROPIONATE
  5. XYREM [Suspect]
     Active Substance: SODIUM OXYBATE
     Indication: NARCOLEPSY
     Dosage: ?          QUANTITY:2 500MG/ML;OTHER FREQUENCY:2 TIMES PER NIGHT;?
     Route: 048

REACTIONS (6)
  - Insomnia [None]
  - Product quality issue [None]
  - Pain [None]
  - Drug ineffective [None]
  - Somnolence [None]
  - Middle insomnia [None]

NARRATIVE: CASE EVENT DATE: 20191009
